FAERS Safety Report 18732093 (Version 4)
Quarter: 2021Q1

REPORT INFORMATION
  Report Type: Report from Study
  Country: KR (occurrence: KR)
  Receive Date: 20210112
  Receipt Date: 20210204
  Transmission Date: 20210419
  Serious: Yes (Hospitalization)
  Sender: FDA-Public Use
  Company Number: KR-CELLTRION INC.-2021KR000157

PATIENT

DRUGS (26)
  1. TRUXIMA [Suspect]
     Active Substance: RITUXIMAB-ABBS
     Indication: CENTRAL NERVOUS SYSTEM LYMPHOMA
     Dosage: 592.5 MG (1 VIAL ? 100MG STRENGTH) (CYCLE 1)
     Route: 042
     Dates: start: 20201110
  2. TRUXIMA [Suspect]
     Active Substance: RITUXIMAB-ABBS
     Dosage: 592.5 MG (1 VIAL ? 500MG STRENGTH) (CYCLE 1)
     Route: 042
     Dates: start: 20201110
  3. TRUXIMA [Suspect]
     Active Substance: RITUXIMAB-ABBS
     Dosage: 581.25 MG (1 VIAL ? 500MG STRENGTH) (CYCLE 2)
     Route: 042
     Dates: start: 20201204
  4. IBRUTINIB [Suspect]
     Active Substance: IBRUTINIB
     Indication: CENTRAL NERVOUS SYSTEM LYMPHOMA
     Dosage: STOP DATE: 06?JAN?2021
  5. TRUXIMA [Suspect]
     Active Substance: RITUXIMAB-ABBS
     Dosage: 581.25 MG  (1 VIAL ? 100MG STRENGTH) (CYCLE 2)
     Route: 042
     Dates: start: 20201204
  6. KEPPRA [Concomitant]
     Active Substance: LEVETIRACETAM
     Indication: PROPHYLAXIS
     Dosage: 500 MG, FREQUENCY: 2
     Route: 048
     Dates: start: 20200409
  7. DIABEX [Concomitant]
     Active Substance: METFORMIN HYDROCHLORIDE
     Indication: DIABETES MELLITUS
     Dosage: 1 G, FREQUENCY: 1
     Route: 048
     Dates: start: 20141030, end: 20210113
  8. DICAMAX 1000 [Concomitant]
     Indication: PROPHYLAXIS
     Dosage: 1 DF,  FREQUENCY: 1
     Route: 048
     Dates: start: 20200417
  9. VACRAX [Concomitant]
     Indication: PROPHYLAXIS
     Dosage: 200 MG, FREQUENCY: 2
     Route: 048
     Dates: start: 20201228, end: 20210112
  10. TRUXIMA [Suspect]
     Active Substance: RITUXIMAB-ABBS
     Dosage: 570 MG (1 VIAL ? 100MG STRENGTH) (CYCLE 3)
     Route: 042
     Dates: start: 20201228
  11. TRUXIMA [Suspect]
     Active Substance: RITUXIMAB-ABBS
     Dosage: 570 MG (1 VIAL ? 500MG STRENGTH) (CYCLE 3)
     Route: 042
     Dates: start: 20201228
  12. TENELIA M SR [Concomitant]
     Indication: DIABETES MELLITUS
     Dosage: 1 DF, FREQUENCY: 1
     Route: 048
     Dates: start: 20210105, end: 20210112
  13. FURTMAN [Concomitant]
     Indication: PARENTERAL NUTRITION
     Dosage: 1 ML,  FREQUENCY:1
     Route: 042
     Dates: start: 20210105
  14. MEROPEN [Concomitant]
     Active Substance: MEROPENEM
     Indication: PROPHYLAXIS
     Dosage: 1000 MG, FREQUENCY: 3
     Route: 042
     Dates: start: 20210113
  15. SMOFLIPID [Concomitant]
     Active Substance: FISH OIL\MEDIUM-CHAIN TRIGLYCERIDES\OLIVE OIL\SOYBEAN OIL
     Indication: PARENTERAL NUTRITION
     Dosage: 500 ML, FREQUENCY: 1
     Route: 042
     Dates: start: 20210105
  16. GABAPENTIN. [Concomitant]
     Active Substance: GABAPENTIN
     Indication: PROPHYLAXIS
     Dosage: 300 MG, FREQUENCY: 2
     Route: 048
     Dates: start: 20210113
  17. HUMULIN NOS [Concomitant]
     Active Substance: INSULIN HUMAN
     Indication: DIABETES MELLITUS
     Dosage: 28 IU, FREQUENCY: 1
     Route: 058
     Dates: start: 20210113
  18. TABAXIN [Concomitant]
     Active Substance: PIPERACILLIN SODIUM\TAZOBACTAM SODIUM
     Indication: PROPHYLAXIS
     Dosage: 4.5 G, FREQUENCY: 3
     Route: 042
     Dates: start: 20210104, end: 20210106
  19. LIPITOR [Concomitant]
     Active Substance: ATORVASTATIN CALCIUM
     Indication: DYSLIPIDAEMIA
     Dosage: 10 MG, FREQUENCY: 1
     Route: 048
     Dates: start: 20070509
  20. NEXIUM [Concomitant]
     Active Substance: ESOMEPRAZOLE MAGNESIUM
     Indication: PROPHYLAXIS
     Dosage: 40 MG, FREQUENCY: 1
     Route: 048
     Dates: start: 20210105
  21. MUCOSTA [Concomitant]
     Active Substance: REBAMIPIDE
     Indication: PROPHYLAXIS
     Dosage: 100 MG, FREQUENCY:3
     Route: 048
     Dates: start: 20210103
  22. TAMIPOOL [Concomitant]
     Active Substance: VITAMINS
     Indication: PARENTERAL NUTRITION
     Dosage: 1 VIAL, FREQUENCY: 1
     Route: 042
     Dates: start: 20210105
  23. SEPTRIN [Concomitant]
     Active Substance: SULFAMETHOXAZOLE\TRIMETHOPRIM
     Indication: PROPHYLAXIS
     Dosage: 1 DF,  FREQUENCY: 1
     Route: 048
     Dates: start: 20201228, end: 20210112
  24. DIFLUCAN [Concomitant]
     Active Substance: FLUCONAZOLE
     Indication: PROPHYLAXIS
     Dosage: 100 MG, FREQUENCY: 1
     Route: 048
     Dates: start: 20201228, end: 20210112
  25. SOLONDO [Concomitant]
     Active Substance: PREDNISOLONE
     Indication: CENTRAL NERVOUS SYSTEM LYMPHOMA
     Dosage: 5 MG, FREQUENCY: 1
     Route: 048
     Dates: start: 20201208, end: 20210113
  26. VESICARE [Concomitant]
     Active Substance: SOLIFENACIN SUCCINATE
     Indication: POLLAKIURIA
     Dosage: 5 MG, FREQUENCY: 1
     Route: 048
     Dates: start: 20200901

REACTIONS (9)
  - Hypophagia [Not Recovered/Not Resolved]
  - Disease progression [Unknown]
  - Asthenia [Unknown]
  - C-reactive protein increased [Recovering/Resolving]
  - Overdose [Unknown]
  - Off label use [Unknown]
  - Pyuria [Recovering/Resolving]
  - Therapy partial responder [Unknown]
  - Cerebral haemorrhage [Recovered/Resolved]

NARRATIVE: CASE EVENT DATE: 20201217
